FAERS Safety Report 8097557-9 (Version None)
Quarter: 2012Q1

REPORT INFORMATION
  Report Type: 
  Country: None (occurrence: None)
  Receive Date: 20120128
  Receipt Date: 20110701
  Transmission Date: 20120608
  Serious: No
  Sender: FDA-Public Use
  Company Number: US-ABBOTT-11P-163-0837002-00

PATIENT
  Age: 32 Year
  Sex: Female

DRUGS (9)
  1. HUMIRA [Suspect]
  2. MAGNESIUM OXIDE [Concomitant]
     Indication: PRODUCT USED FOR UNKNOWN INDICATION
     Dosage: 420MG DAILY
  3. HUMIRA [Suspect]
     Indication: CROHN'S DISEASE
     Dosage: 160MG INITIAL DOSE
     Dates: start: 20110620, end: 20110620
  4. HUMIRA [Suspect]
     Indication: CROHN'S DISEASE
     Dosage: LOADING DOSE
     Dates: start: 20110620, end: 20110620
  5. PREDNISONE TAB [Concomitant]
     Dosage: 35MG NOW AND TAPERING DOSE BY 5MG EACH WEEK AND THEN AT 20MG F/U W/DR.
  6. POTASSIUM CHLORIDE [Concomitant]
     Indication: PRODUCT USED FOR UNKNOWN INDICATION
     Dosage: 1 PACKET DAILY
  7. OMEPRAZOLE [Concomitant]
     Indication: PRODUCT USED FOR UNKNOWN INDICATION
  8. PREDNISONE TAB [Suspect]
     Indication: PRODUCT USED FOR UNKNOWN INDICATION
  9. FOLIC ACID [Concomitant]
     Indication: PRODUCT USED FOR UNKNOWN INDICATION
     Dosage: 1MG DAILY

REACTIONS (1)
  - OEDEMA PERIPHERAL [None]
